FAERS Safety Report 7956073-2 (Version None)
Quarter: 2011Q4

REPORT INFORMATION
  Report Type: 
  Country: None (occurrence: None)
  Receive Date: 20111205
  Receipt Date: 20111130
  Transmission Date: 20120403
  Serious: No
  Sender: FDA-Public Use
  Company Number: US-PFIZER INC-2011292826

PATIENT
  Sex: Female
  Weight: 59.9 kg

DRUGS (2)
  1. ESTRING [Suspect]
     Indication: OESTROGEN THERAPY
     Dosage: UNK
     Route: 067
     Dates: start: 20111118, end: 20111125
  2. BONIVA [Concomitant]
     Indication: OSTEOPOROSIS
     Dosage: UNK
     Dates: start: 20111102

REACTIONS (1)
  - VULVOVAGINAL PAIN [None]
